FAERS Safety Report 17191177 (Version 1)
Quarter: 2019Q4

REPORT INFORMATION
  Report Type: Spontaneous
  Country: US (occurrence: US)
  Receive Date: 20191220
  Receipt Date: 20191220
  Transmission Date: 20200122
  Serious: Yes (Death)
  Sender: FDA-Public Use
  Company Number: None

PATIENT
  Age: 65 Year
  Sex: Female

DRUGS (4)
  1. BOTOX [Suspect]
     Active Substance: ONABOTULINUMTOXINA
     Indication: HEMIPLEGIA
     Dosage: ?          OTHER FREQUENCY:ONCE EVERY 90 DAYS;?
     Route: 030
     Dates: start: 20190913, end: 20191110
  2. LEVOTHYROXIN TAB 50MCG [Concomitant]
     Dates: start: 20190910, end: 20191110
  3. GABAPENTIN CAP 100MG [Concomitant]
     Dates: start: 20190910, end: 20191110
  4. ASPIRIN LOW TAB 81MG EC [Concomitant]
     Dates: start: 20190910, end: 20191110

REACTIONS (1)
  - Death [None]

NARRATIVE: CASE EVENT DATE: 20191110
